FAERS Safety Report 8233428-2 (Version None)
Quarter: 2012Q1

REPORT INFORMATION
  Report Type: 
  Country: None (occurrence: None)
  Receive Date: 20120326
  Receipt Date: 20120316
  Transmission Date: 20120608
  Serious: Yes (Death)
  Sender: FDA-Public Use
  Company Number: US-CELGENEUS-163-21880-12023212

PATIENT
  Sex: Female

DRUGS (9)
  1. DEXAMETHASONE [Concomitant]
     Route: 065
  2. REVLIMID [Suspect]
     Dosage: 10 MILLIGRAM
     Route: 048
     Dates: start: 20111221, end: 20120201
  3. METFORMIN HCL [Concomitant]
     Route: 065
  4. HYDROCODONE BITARTRATE AND ACETAMINOPHEN [Concomitant]
     Route: 065
  5. METOPROLOL SUCCINATE [Concomitant]
     Route: 065
  6. CYCLOBENZAPRINE HCL [Concomitant]
     Route: 065
  7. CILOSTAZOL [Concomitant]
     Route: 065
  8. CLONIDINE HCL [Concomitant]
     Route: 065
  9. COLACE [Concomitant]
     Route: 065

REACTIONS (1)
  - DEATH [None]
